FAERS Safety Report 5658359-3 (Version None)
Quarter: 2008Q1

REPORT INFORMATION
  Report Type: 
  Country: None (occurrence: None)
  Receive Date: 20080310
  Receipt Date: 20070207
  Transmission Date: 20080703
  Serious: No
  Sender: FDA-Public Use
  Company Number: US-BAYER-200710453BCC

PATIENT
  Sex: Male
  Weight: 88 kg

DRUGS (4)
  1. ALEVE [Suspect]
     Indication: PROCEDURAL PAIN
     Route: 048
     Dates: start: 20061201
  2. TYLENOL (CAPLET) [Concomitant]
  3. HIGH BLOOD PRESSURE MEDICATION [Concomitant]
  4. HIGH CHOLESTEROL MEDICATION [Concomitant]

REACTIONS (1)
  - INITIAL INSOMNIA [None]
